FAERS Safety Report 7064768-0 (Version None)
Quarter: 2010Q4

REPORT INFORMATION
  Report Type: 
  Country: None (occurrence: None)
  Receive Date: 20101027
  Receipt Date: 19800913
  Transmission Date: 20110411
  Serious: Yes (Death, Life-Threatening, Hospitalization)
  Sender: FDA-Public Use
  Company Number: DE-ROCHE-800308767001

PATIENT
  Age: 50 Year
  Sex: Male
  Weight: 116 kg

DRUGS (2)
  1. VALIUM [Suspect]
     Route: 048
  2. ALCOHOL [Suspect]
     Route: 048

REACTIONS (2)
  - DEATH [None]
  - RESPIRATORY ARREST [None]
